FAERS Safety Report 20213937 (Version 1)
Quarter: 2021Q4

REPORT INFORMATION
  Report Type: Spontaneous
  Country: US (occurrence: US)
  Receive Date: 20211221
  Receipt Date: 20211221
  Transmission Date: 20220303
  Serious: No
  Sender: FDA-Public Use
  Company Number: US-JNJFOC-20211232503

PATIENT
  Age: 51 Year
  Sex: Female
  Weight: 88.530 kg

DRUGS (1)
  1. TOPAMAX [Suspect]
     Active Substance: TOPIRAMATE
     Indication: Migraine
     Dosage: 2017 OR 2018
     Route: 048

REACTIONS (1)
  - Postural orthostatic tachycardia syndrome [Unknown]
